FAERS Safety Report 7503666-2 (Version None)
Quarter: 2011Q2

REPORT INFORMATION
  Report Type: 
  Country: None (occurrence: None)
  Receive Date: 20110518
  Receipt Date: 20110426
  Transmission Date: 20111010
  Serious: Yes (Hospitalization, Other)
  Sender: FDA-Public Use
  Company Number: 2011030131

PATIENT
  Age: 15 Year
  Sex: Male

DRUGS (1)
  1. FELBAMATE [Suspect]
     Indication: LENNOX-GASTAUT SYNDROME
     Dosage: 600 MG (600 MG,1 IN 1 D), ORAL
     Route: 048
     Dates: start: 20090101, end: 20110101

REACTIONS (4)
  - NEPHROLITHIASIS [None]
  - CALCULUS BLADDER [None]
  - URINARY TRACT INFECTION [None]
  - CULTURE URINE POSITIVE [None]
